FAERS Safety Report 7813746-X (Version None)
Quarter: 2011Q4

REPORT INFORMATION
  Report Type: 
  Country: None (occurrence: None)
  Receive Date: 20111011
  Receipt Date: 20111004
  Transmission Date: 20120403
  Serious: Yes (Other)
  Sender: FDA-Public Use
  Company Number: 2011SP047014

PATIENT
  Age: 42 Year
  Sex: Male

DRUGS (2)
  1. SAPHRIS [Suspect]
     Indication: PRODUCT USED FOR UNKNOWN INDICATION
     Dosage: 5;10 MG, BID, PO
     Route: 048
     Dates: start: 20110909
  2. SAPHRIS [Suspect]
     Indication: PRODUCT USED FOR UNKNOWN INDICATION
     Dosage: 5;10 MG, BID, PO
     Route: 048
     Dates: start: 20110901

REACTIONS (1)
  - PSYCHOTIC DISORDER [None]
